FAERS Safety Report 25351722 (Version 3)
Quarter: 2025Q2

REPORT INFORMATION
  Report Type: Spontaneous
  Country: ES (occurrence: ES)
  Receive Date: 20250523
  Receipt Date: 20250627
  Transmission Date: 20250717
  Serious: Yes (Hospitalization, Other)
  Sender: AUROBINDO
  Company Number: ES-ETHYPHARM-2025001228

PATIENT
  Age: 16 Year
  Sex: Female

DRUGS (2)
  1. ZOLEDRONIC ACID [Suspect]
     Active Substance: ZOLEDRONIC ACID
     Indication: Osteopenia
     Dosage: 4 MILLIGRAM, EVERY WEEK
     Route: 042
  2. FILGRASTIM [Concomitant]
     Active Substance: FILGRASTIM
     Indication: Cyclic neutropenia
     Route: 065

REACTIONS (4)
  - Osteonecrosis of jaw [Recovered/Resolved with Sequelae]
  - Sepsis [Recovered/Resolved]
  - Osteomyelitis [Recovered/Resolved with Sequelae]
  - Off label use [Recovered/Resolved with Sequelae]
